FAERS Safety Report 20579908 (Version 6)
Quarter: 2025Q1

REPORT INFORMATION
  Report Type: Report from Study
  Country: US (occurrence: US)
  Receive Date: 20220310
  Receipt Date: 20250317
  Transmission Date: 20250409
  Serious: Yes (Hospitalization, Other)
  Sender: TAKEDA
  Company Number: US-TAKEDA-2022TUS015181

PATIENT
  Sex: Female
  Weight: 90.7 kg

DRUGS (39)
  1. .ALPHA.1-PROTEINASE INHIBITOR HUMAN [Suspect]
     Active Substance: .ALPHA.1-PROTEINASE INHIBITOR HUMAN
     Indication: Alpha-1 anti-trypsin decreased
     Dosage: 60 MILLIGRAM/KILOGRAM, 1/WEEK
     Dates: start: 20210806
  2. .ALPHA.1-PROTEINASE INHIBITOR HUMAN [Suspect]
     Active Substance: .ALPHA.1-PROTEINASE INHIBITOR HUMAN
     Indication: Immunodeficiency common variable
     Dosage: 60 MILLIGRAM/KILOGRAM, 1/WEEK
     Dates: start: 20211014
  3. HEPARIN [Concomitant]
     Active Substance: HEPARIN SODIUM
  4. DIPHENHYDRAMINE [Concomitant]
     Active Substance: DIPHENHYDRAMINE
  5. IBUPROFEN [Concomitant]
     Active Substance: IBUPROFEN
  6. ALBUTEROL\IPRATROPIUM [Concomitant]
     Active Substance: ALBUTEROL\IPRATROPIUM
  7. EPINEPHRINE [Concomitant]
     Active Substance: EPINEPHRINE
  8. CEFUROXIME [Concomitant]
     Active Substance: CEFUROXIME
  9. SPIRIVA [Concomitant]
     Active Substance: TIOTROPIUM BROMIDE MONOHYDRATE
  10. HYDROCORTISONE [Concomitant]
     Active Substance: HYDROCORTISONE
  11. PREDNISONE [Concomitant]
     Active Substance: PREDNISONE
  12. SODIUM CHLORIDE [Concomitant]
     Active Substance: SODIUM CHLORIDE
  13. OMEPRAZOLE [Concomitant]
     Active Substance: OMEPRAZOLE
  14. IPRATROPIUM BROMIDE [Concomitant]
     Active Substance: IPRATROPIUM BROMIDE
  15. GABAPENTIN [Concomitant]
     Active Substance: GABAPENTIN
  16. LIDOCAINE [Concomitant]
     Active Substance: LIDOCAINE
  17. DOXYCYCLINE [Concomitant]
     Active Substance: DOXYCYCLINE
  18. OXYGEN [Concomitant]
     Active Substance: OXYGEN
  19. ZOFRAN [Concomitant]
     Active Substance: ONDANSETRON HYDROCHLORIDE
  20. SODIUM CHLORIDE [Concomitant]
     Active Substance: SODIUM CHLORIDE
  21. ANORO ELLIPTA [Concomitant]
     Active Substance: UMECLIDINIUM BROMIDE\VILANTEROL TRIFENATATE
  22. Nac [Concomitant]
  23. QVAR [Concomitant]
     Active Substance: BECLOMETHASONE DIPROPIONATE
  24. CLARITIN [Concomitant]
     Active Substance: LORATADINE
  25. LIPITOR [Concomitant]
     Active Substance: ATORVASTATIN CALCIUM
  26. ALLOPURINOL [Concomitant]
     Active Substance: ALLOPURINOL
  27. VITAMIN C [Concomitant]
     Active Substance: ASCORBIC ACID
  28. HUMALOG [Concomitant]
     Active Substance: INSULIN LISPRO
  29. ALDACTONE [Concomitant]
     Active Substance: SPIRONOLACTONE
  30. POTASSIUM [Concomitant]
     Active Substance: POTASSIUM
  31. LANTUS [Concomitant]
     Active Substance: INSULIN GLARGINE
  32. VERAPAMIL [Concomitant]
     Active Substance: VERAPAMIL HYDROCHLORIDE
  33. FLUTICASONE [Concomitant]
     Active Substance: FLUTICASONE
  34. FERROUS SULFATE [Concomitant]
     Active Substance: FERROUS SULFATE
  35. VANCOMYCIN [Concomitant]
     Active Substance: VANCOMYCIN
  36. OXYCODONE [Concomitant]
     Active Substance: OXYCODONE
  37. DALIRESP [Concomitant]
     Active Substance: ROFLUMILAST
  38. FLUTICASONE PROPIONATE [Concomitant]
     Active Substance: FLUTICASONE PROPIONATE
  39. SPIRIVA RESPIMAT [Concomitant]
     Active Substance: TIOTROPIUM BROMIDE

REACTIONS (7)
  - Sepsis [Unknown]
  - Device related sepsis [Unknown]
  - Pulmonary embolism [Recovered/Resolved]
  - Herpes zoster [Unknown]
  - Dyspnoea [Unknown]
  - Product dose omission issue [Unknown]
  - Inappropriate schedule of product administration [Unknown]
